FAERS Safety Report 7921115-7 (Version None)
Quarter: 2011Q4

REPORT INFORMATION
  Report Type: 
  Country: None (occurrence: None)
  Receive Date: 20111117
  Receipt Date: 20111111
  Transmission Date: 20120403
  Serious: Yes (Hospitalization)
  Sender: FDA-Public Use
  Company Number: FI-CEPHALON-2011005533

PATIENT
  Sex: Male

DRUGS (7)
  1. BENDAMUSTINE HCL [Suspect]
     Route: 042
     Dates: start: 20111019
  2. RABEPRAZOLE SODIUM [Concomitant]
     Dates: start: 20040101
  3. ALLOPURINOL [Concomitant]
     Dates: start: 20111012
  4. RITUXIMAB [Suspect]
     Route: 042
     Dates: start: 20111019
  5. AMLODIPINE [Concomitant]
     Dates: start: 19910101
  6. LOSARTAN [Concomitant]
     Dates: start: 19910101
  7. CALCIUM + VITAMIN D [Concomitant]
     Dates: start: 20100101

REACTIONS (3)
  - SEPSIS [None]
  - LISTERIOSIS [None]
  - NEUTROPHIL COUNT DECREASED [None]
